FAERS Safety Report 11111698 (Version 2)
Quarter: 2015Q3

REPORT INFORMATION
  Report Type: Report from Study
  Country: BR (occurrence: BR)
  Receive Date: 20150514
  Receipt Date: 20150707
  Transmission Date: 20151125
  Serious: Yes (Other)
  Sender: FDA-Public Use
  Company Number: BR-ABBVIE-15K-020-1388700-00

PATIENT
  Age: 49 Year
  Sex: Male
  Weight: 69 kg

DRUGS (3)
  1. HUMIRA [Suspect]
     Active Substance: ADALIMUMAB
     Indication: ANKYLOSING SPONDYLITIS
     Route: 058
     Dates: start: 20140807, end: 201505
  2. MIOFLEX A [Concomitant]
     Indication: PRODUCT USED FOR UNKNOWN INDICATION
  3. MELOXICAM. [Concomitant]
     Active Substance: MELOXICAM
     Indication: PAIN
     Route: 048
     Dates: end: 201505

REACTIONS (7)
  - Mobility decreased [Unknown]
  - Grip strength decreased [Recovered/Resolved]
  - Muscular weakness [Not Recovered/Not Resolved]
  - Hypoaesthesia [Recovered/Resolved]
  - Pain [Unknown]
  - Mobility decreased [Recovered/Resolved]
  - Intervertebral disc protrusion [Recovered/Resolved]

NARRATIVE: CASE EVENT DATE: 201502
